FAERS Safety Report 17130106 (Version 4)
Quarter: 2021Q2

REPORT INFORMATION
  Report Type: Report from Study
  Country: JP (occurrence: JP)
  Receive Date: 20191209
  Receipt Date: 20210601
  Transmission Date: 20210716
  Serious: Yes (Hospitalization)
  Sender: FDA-Public Use
  Company Number: JP-BIOCODEX SA-201801605

PATIENT

DRUGS (33)
  1. DIACOMIT [Suspect]
     Active Substance: STIRIPENTOL
     Dosage: 125 MG, QD
     Route: 048
     Dates: start: 20171214, end: 20180208
  2. DIACOMIT [Suspect]
     Active Substance: STIRIPENTOL
     Dosage: 250 MG, QD
     Route: 048
     Dates: start: 20180209, end: 20180304
  3. DIACOMIT [Suspect]
     Active Substance: STIRIPENTOL
     Dosage: EVERY 1 DAY(S) 625MG AND 750 MG ALTERNATIVELY
     Route: 048
     Dates: start: 20191224, end: 20200217
  4. DEPAKENE [Suspect]
     Active Substance: VALPROIC ACID
     Dosage: 800 MG, QD
     Route: 048
     Dates: start: 20171031, end: 20171120
  5. ETHOSUXIMIDE. [Concomitant]
     Active Substance: ETHOSUXIMIDE
     Indication: SEVERE MYOCLONIC EPILEPSY OF INFANCY
     Dosage: 1 G, QD
     Route: 048
     Dates: start: 20171204, end: 20171213
  6. DIACOMIT [Suspect]
     Active Substance: STIRIPENTOL
     Dosage: 500 MG, QD
     Route: 048
     Dates: start: 20180925, end: 20181224
  7. DIACOMIT [Suspect]
     Active Substance: STIRIPENTOL
     Dosage: 750 MG, QD
     Route: 048
     Dates: start: 20200218
  8. DEPAKENE [Suspect]
     Active Substance: VALPROIC ACID
     Indication: SEVERE MYOCLONIC EPILEPSY OF INFANCY
     Dosage: 600 MG, QD
     Route: 048
     Dates: start: 20170516, end: 20170529
  9. DEPAKENE [Suspect]
     Active Substance: VALPROIC ACID
     Dosage: 500 MG, QD
     Route: 048
     Dates: start: 20180404
  10. POTASSIUM BROMIDE [Concomitant]
     Active Substance: POTASSIUM BROMIDE
     Indication: SEVERE MYOCLONIC EPILEPSY OF INFANCY
     Dosage: 1.59 G, QD
     Route: 048
     Dates: start: 20170603, end: 20171213
  11. MAGNESIUM OXIDE. [Concomitant]
     Active Substance: MAGNESIUM OXIDE
     Indication: SEVERE MYOCLONIC EPILEPSY OF INFANCY
     Dosage: 1 G, QD
     Route: 048
     Dates: start: 20180404, end: 20180423
  12. DIACOMIT [Suspect]
     Active Substance: STIRIPENTOL
     Dosage: 250MG THREE TIMES A DAY
     Route: 048
     Dates: start: 20171121, end: 20171130
  13. DIACOMIT [Suspect]
     Active Substance: STIRIPENTOL
     Dosage: 500 MG, QD
     Route: 048
     Dates: start: 20171201, end: 20171206
  14. DEPAKENE [Suspect]
     Active Substance: VALPROIC ACID
     Dosage: 1200 MG, QD
     Route: 048
     Dates: start: 20170530, end: 20170718
  15. DIACOMIT [Suspect]
     Active Substance: STIRIPENTOL
     Dosage: 250 MG, QD
     Route: 048
     Dates: start: 20171207, end: 20171213
  16. CLOBAZAM. [Suspect]
     Active Substance: CLOBAZAM
     Indication: SEVERE MYOCLONIC EPILEPSY OF INFANCY
     Dosage: 33 MG, QD
     Route: 048
     Dates: start: 20180208, end: 20180208
  17. CLOBAZAM. [Suspect]
     Active Substance: CLOBAZAM
     Dosage: 15 MG, QD
     Route: 048
     Dates: start: 20200414
  18. DEPAKENE [Suspect]
     Active Substance: VALPROIC ACID
     Dosage: 700 MG, QD
     Route: 048
     Dates: start: 20171121, end: 20171203
  19. DEPAKENE [Suspect]
     Active Substance: VALPROIC ACID
     Dosage: 600 MG, QD
     Route: 048
     Dates: start: 20171204, end: 20180403
  20. ETHOSUXIMIDE. [Concomitant]
     Active Substance: ETHOSUXIMIDE
     Indication: SEVERE MYOCLONIC EPILEPSY OF INFANCY
     Dosage: 1.2 G, QD
     Route: 048
     Dates: start: 20170603, end: 20171203
  21. POTASSIUM BROMIDE [Concomitant]
     Active Substance: POTASSIUM BROMIDE
     Indication: SEVERE MYOCLONIC EPILEPSY OF INFANCY
     Dosage: 1.5 G, QD
     Route: 048
     Dates: start: 20171214
  22. LEVETIRACETAM. [Concomitant]
     Active Substance: LEVETIRACETAM
     Indication: SEVERE MYOCLONIC EPILEPSY OF INFANCY
     Dosage: 1.8 G, QD
     Route: 048
     Dates: start: 20170603, end: 20170803
  23. LEVETIRACETAM. [Concomitant]
     Active Substance: LEVETIRACETAM
     Dosage: 1.8 G, QD
     Route: 048
     Dates: start: 20170818, end: 20190513
  24. DIACOMIT [Suspect]
     Active Substance: STIRIPENTOL
     Indication: SEVERE MYOCLONIC EPILEPSY OF INFANCY
     Dosage: 500 MG, QD
     Route: 048
     Dates: start: 20170704, end: 20170920
  25. DIACOMIT [Suspect]
     Active Substance: STIRIPENTOL
     Dosage: 625 MG, QD
     Route: 048
     Dates: start: 20181225, end: 20190630
  26. ETHOSUXIMIDE. [Concomitant]
     Active Substance: ETHOSUXIMIDE
     Dosage: 0.9 G, QD
     Route: 048
     Dates: start: 20171214
  27. MAGNESIUM OXIDE. [Concomitant]
     Active Substance: MAGNESIUM OXIDE
     Indication: SEVERE MYOCLONIC EPILEPSY OF INFANCY
     Dosage: 0.6 G, QD
     Route: 048
     Dates: start: 20180209, end: 20180403
  28. CLOBAZAM. [Suspect]
     Active Substance: CLOBAZAM
     Dosage: 20 MG, QD
     Route: 048
     Dates: start: 20180216, end: 20200413
  29. DIACOMIT [Suspect]
     Active Substance: STIRIPENTOL
     Dosage: 750 MG, QD
     Route: 048
     Dates: start: 20170921, end: 20171120
  30. DIACOMIT [Suspect]
     Active Substance: STIRIPENTOL
     Dosage: 375 MG, QD
     Route: 048
     Dates: start: 20180305, end: 20180924
  31. CLOBAZAM. [Suspect]
     Active Substance: CLOBAZAM
     Dosage: 25 MG, QD
     Route: 048
     Dates: start: 20180209, end: 20180215
  32. DEPAKENE [Suspect]
     Active Substance: VALPROIC ACID
     Dosage: 900 MG, QD
     Route: 048
     Dates: start: 20170719, end: 20171030
  33. LEVETIRACETAM. [Concomitant]
     Active Substance: LEVETIRACETAM
     Dosage: 2.25 G, QD
     Route: 048
     Dates: start: 20170804, end: 20170817

REACTIONS (6)
  - Upper respiratory tract inflammation [Recovered/Resolved]
  - Dizziness [Recovered/Resolved]
  - Ammonia increased [Recovering/Resolving]
  - Weight increased [Not Recovered/Not Resolved]
  - Somnolence [Recovered/Resolved]
  - Decreased appetite [Recovered/Resolved]

NARRATIVE: CASE EVENT DATE: 20170710
